FAERS Safety Report 6430399-6 (Version None)
Quarter: 2009Q4

REPORT INFORMATION
  Report Type: 
  Country: None (occurrence: None)
  Receive Date: 20091106
  Receipt Date: 20091026
  Transmission Date: 20100525
  Serious: Yes (Other)
  Sender: FDA-Public Use
  Company Number: BR-PFIZER INC-2009288380

PATIENT
  Age: 49 Year
  Sex: Male
  Weight: 78 kg

DRUGS (5)
  1. VIAGRA [Suspect]
     Indication: ERECTILE DYSFUNCTION
     Dosage: 50 MG, AS NEEDED
     Route: 048
     Dates: start: 20090101
  2. GLIBENCLAMIDE [Concomitant]
     Indication: DIABETES MELLITUS
     Dosage: 50 MG, EVERY TWELVE HOURS
  3. METFORMIN [Concomitant]
     Indication: DIABETES MELLITUS
     Dosage: 50 MG, EVERY TWELVE HOURS
  4. METFORMIN [Concomitant]
     Dosage: 25 MG, 2X/DAY
     Dates: start: 20090929
  5. METFORMIN [Concomitant]
     Dosage: 50 MG, 2X/DAY

REACTIONS (4)
  - BLOOD GLUCOSE FLUCTUATION [None]
  - DEPRESSED MOOD [None]
  - DRUG INEFFECTIVE [None]
  - PARAESTHESIA [None]
